FAERS Safety Report 25764586 (Version 1)
Quarter: 2025Q3

REPORT INFORMATION
  Report Type: Spontaneous
  Country: US (occurrence: US)
  Receive Date: 20250905
  Receipt Date: 20250905
  Transmission Date: 20251020
  Serious: No
  Sender: DOMPE FARMACEUTICI
  Company Number: US-FARMAPROD-202501-0133

PATIENT
  Age: 83 Year
  Sex: Female
  Weight: 78.47 kg

DRUGS (6)
  1. OXERVATE [Suspect]
     Active Substance: CENEGERMIN-BKBJ
     Indication: Neurotrophic keratopathy
     Route: 047
     Dates: start: 20241227
  2. OXERVATE [Suspect]
     Active Substance: CENEGERMIN-BKBJ
  3. VALTREX [Concomitant]
     Active Substance: VALACYCLOVIR HYDROCHLORIDE
  4. ELIQUIS [Concomitant]
     Active Substance: APIXABAN
  5. TRAVATAN Z [Concomitant]
     Active Substance: TRAVOPROST
  6. OMEPRAZOLE [Concomitant]
     Active Substance: OMEPRAZOLE

REACTIONS (2)
  - Dizziness [Unknown]
  - Eye infection viral [Unknown]

NARRATIVE: CASE EVENT DATE: 20250206
